FAERS Safety Report 10539985 (Version 2)
Quarter: 2014Q4

REPORT INFORMATION
  Report Type: Spontaneous
  Country: US (occurrence: US)
  Receive Date: 20141024
  Receipt Date: 20141031
  Transmission Date: 20150529
  Serious: No
  Sender: FDA-Public Use
  Company Number: US-AMGEN INC.-USASP2014080831

PATIENT
  Age: 25 Year
  Sex: Female
  Weight: 55.78 kg

DRUGS (1)
  1. ENBREL [Suspect]
     Active Substance: ETANERCEPT
     Indication: RHEUMATOID ARTHRITIS
     Dosage: 50 MG, QWK
     Route: 058
     Dates: start: 20140701

REACTIONS (8)
  - Abdominal pain lower [Recovered/Resolved]
  - Lymphadenopathy [Recovered/Resolved]
  - Rhinorrhoea [Recovered/Resolved]
  - Injection site rash [Recovering/Resolving]
  - Injection site swelling [Recovering/Resolving]
  - Injection site urticaria [Recovering/Resolving]
  - Injection site reaction [Recovering/Resolving]
  - Injection site erythema [Recovering/Resolving]
